FAERS Safety Report 4556558-5 (Version None)
Quarter: 2005Q1

REPORT INFORMATION
  Report Type: 
  Country: None (occurrence: None)
  Receive Date: 20050118
  Receipt Date: 20050104
  Transmission Date: 20050727
  Serious: Yes (Other)
  Sender: FDA-Public Use
  Company Number: 2005000804

PATIENT
  Age: 80 Year
  Sex: Male
  Weight: 90.7194 kg

DRUGS (7)
  1. NORVASC [Suspect]
     Indication: HYPERTENSION
     Dosage: ORAL
     Route: 048
  2. VIAGRA [Suspect]
     Indication: ERECTILE DYSFUNCTION
     Dosage: 50 MG, AS NECESSARY, ORAL
     Route: 048
  3. ATORVASTATIN (ATORVASTATIN) [Concomitant]
  4. ASPIRIN [Concomitant]
  5. METOPROLOL SUCCINATE [Concomitant]
  6. HYDROCHLOROTHIAZIDE [Concomitant]
  7. SOTALOL HCL [Concomitant]

REACTIONS (3)
  - AORTIC ANEURYSM [None]
  - DRUG EFFECT DECREASED [None]
  - ERECTILE DYSFUNCTION [None]
